FAERS Safety Report 15396074 (Version 1)
Quarter: 2018Q3

REPORT INFORMATION
  Report Type: Spontaneous
  Country: US (occurrence: US)
  Receive Date: 20180911
  Receipt Date: 20180911
  Transmission Date: 20181010
  Serious: Yes (Life-Threatening, Hospitalization, Other)
  Sender: FDA-Public Use
  Company Number: None

PATIENT
  Age: 71 Year
  Sex: Female
  Weight: 74.1 kg

DRUGS (2)
  1. CEFTRIAXONE. [Suspect]
     Active Substance: CEFTRIAXONE
     Indication: URINARY TRACT INFECTION
     Route: 042
     Dates: start: 20180808, end: 20180808
  2. CEFTRIAXONE. [Suspect]
     Active Substance: CEFTRIAXONE
     Indication: PYELONEPHRITIS
     Route: 042
     Dates: start: 20180808, end: 20180808

REACTIONS (4)
  - Infusion related reaction [None]
  - Respiratory distress [None]
  - Wheezing [None]
  - Oxygen saturation decreased [None]

NARRATIVE: CASE EVENT DATE: 20180808
